FAERS Safety Report 20767856 (Version 1)
Quarter: 2022Q2

REPORT INFORMATION
  Report Type: Spontaneous
  Country: US (occurrence: US)
  Receive Date: 20220429
  Receipt Date: 20220429
  Transmission Date: 20220720
  Serious: Yes (Other)
  Sender: FDA-Public Use
  Company Number: US-drreddys-LIT/USA/22/0149360

PATIENT
  Age: 70 Year
  Sex: Female

DRUGS (8)
  1. ABIRATERONE [Suspect]
     Active Substance: ABIRATERONE
     Indication: Prostate cancer metastatic
  2. ABIRATERONE [Suspect]
     Active Substance: ABIRATERONE
  3. PREDNISONE [Suspect]
     Active Substance: PREDNISONE
     Indication: Prostate cancer metastatic
  4. PREDNISONE [Suspect]
     Active Substance: PREDNISONE
     Indication: Antiandrogen therapy
  5. ONVANSERTIB [Suspect]
     Active Substance: ONVANSERTIB
     Indication: Hormone-refractory prostate cancer
  6. ONVANSERTIB [Suspect]
     Active Substance: ONVANSERTIB
     Indication: Antiandrogen therapy
  7. LEUPROLIDE [Concomitant]
     Active Substance: LEUPROLIDE
     Indication: Prostate cancer metastatic
  8. LEUPROLIDE [Concomitant]
     Active Substance: LEUPROLIDE
     Indication: Antiandrogen therapy

REACTIONS (3)
  - Drug resistance [Unknown]
  - Disease progression [Recovering/Resolving]
  - Prostate cancer metastatic [Recovering/Resolving]
